FAERS Safety Report 7236757-4 (Version None)
Quarter: 2011Q1

REPORT INFORMATION
  Report Type: 
  Country: None (occurrence: None)
  Receive Date: 20110120
  Receipt Date: 20110116
  Transmission Date: 20110831
  Serious: Yes (Death, Other)
  Sender: FDA-Public Use
  Company Number: NO-PFIZER INC-2011010933

PATIENT
  Age: 40 Year
  Sex: Male

DRUGS (5)
  1. EVEROLIMUS [Suspect]
  2. INTERFERON ALFA [Suspect]
  3. SUTENT [Suspect]
     Indication: METASTASES TO LUNG
     Dosage: 50 MG, CYCLIC: 4 WEEKS ON/ 2 WEEKS OFF
  4. SORAFENIB [Suspect]
     Dosage: 400 MG, 2X/DAY
  5. AVASTIN [Suspect]
     Dosage: 10 MG/KG, UNK

REACTIONS (6)
  - HAEMOPTYSIS [None]
  - HEADACHE [None]
  - METASTASES TO LUNG [None]
  - DISEASE PROGRESSION [None]
  - PNEUMONIA [None]
  - SLEEP DISORDER [None]
